FAERS Safety Report 25176349 (Version 2)
Quarter: 2025Q2

REPORT INFORMATION
  Report Type: Other
  Country: CA (occurrence: CA)
  Receive Date: 20250409
  Receipt Date: 20250620
  Transmission Date: 20250716
  Serious: Yes (Hospitalization)
  Sender: APOTEX
  Company Number: CA-APOTEX-2025AP004182

PATIENT
  Sex: Male

DRUGS (2)
  1. DASATINIB [Suspect]
     Active Substance: DASATINIB
     Indication: Acute myeloid leukaemia
     Dosage: 70 MILLIGRAM, BID, 140 MG DAILY FOR 30 DAYS
     Route: 048
     Dates: start: 20250131, end: 2025
  2. DASATINIB [Suspect]
     Active Substance: DASATINIB
     Indication: Gene mutation

REACTIONS (1)
  - Drug therapy [Unknown]
